FAERS Safety Report 6707590-4 (Version None)
Quarter: 2010Q2

REPORT INFORMATION
  Report Type: 
  Country: None (occurrence: None)
  Receive Date: 20100429
  Receipt Date: 20100420
  Transmission Date: 20101027
  Serious: Yes (Other)
  Sender: FDA-Public Use
  Company Number: 2010SCPR000559

PATIENT

DRUGS (1)
  1. IBUPROFEN [Suspect]
     Indication: PAIN

REACTIONS (1)
  - MENINGITIS ASEPTIC [None]
